FAERS Safety Report 13098845 (Version 2)
Quarter: 2017Q1

REPORT INFORMATION
  Report Type: Spontaneous
  Country: TH (occurrence: TH)
  Receive Date: 20170109
  Receipt Date: 20170125
  Transmission Date: 20170428
  Serious: Yes (Other)
  Sender: FDA-Public Use
  Company Number: TH-PFIZER INC-2017004372

PATIENT
  Age: 64 Year
  Sex: Male

DRUGS (2)
  1. CIPROFLOXACIN HCL [Suspect]
     Active Substance: CIPROFLOXACIN HYDROCHLORIDE
     Indication: PSEUDOMONAL SEPSIS
  2. CIPROFLOXACIN HCL [Suspect]
     Active Substance: CIPROFLOXACIN HYDROCHLORIDE
     Indication: CELLULITIS
     Dosage: 400 MG, UNK
     Route: 042

REACTIONS (8)
  - Drug hypersensitivity [Unknown]
  - Pruritus [Unknown]
  - Injection site pain [Unknown]
  - Flushing [Unknown]
  - Urticaria [Unknown]
  - Burning sensation [Unknown]
  - Dizziness [Unknown]
  - Vision blurred [Unknown]
